FAERS Safety Report 9167267 (Version 1)
Quarter: 2013Q1

REPORT INFORMATION
  Report Type: Spontaneous
  Country: GB (occurrence: None)
  Receive Date: 20130307
  Receipt Date: 20130307
  Transmission Date: 20140127
  Serious: Yes (Other)
  Sender: FDA-Public Use
  Company Number: AXC-2013-000080

PATIENT
  Age: 70 Year
  Sex: Male

DRUGS (9)
  1. DICYCLOMINE [Suspect]
     Indication: MUSCLE SPASMS
     Route: 048
  2. DICYCLOMINE [Suspect]
     Route: 048
  3. NITROGLYCERIN [Suspect]
     Indication: PRODUCT USED FOR UNKNOWN INDICATION
  4. MORPHINE [Concomitant]
  5. ATENOLOL (ATENOLOL) [Concomitant]
  6. RAMPRIL (RAMPRIL) [Concomitant]
  7. LIPITOR (ATORVASTATIN CALCIUM) [Concomitant]
  8. AMLODIPINE (AMLODIPINE) [Concomitant]
  9. (ISOSORBIDE /07346401/ (ISOSORBIDE MONONITRATE)E [Concomitant]

REACTIONS (1)
  - Hiatus hernia [None]
